FAERS Safety Report 5415399-7 (Version None)
Quarter: 2007Q3

REPORT INFORMATION
  Report Type: 
  Country: None (occurrence: None)
  Receive Date: 20070813
  Receipt Date: 20070806
  Transmission Date: 20080115
  Serious: Yes (Hospitalization, Other)
  Sender: FDA-Public Use
  Company Number: 2007SP015885

PATIENT
  Age: 44 Year
  Sex: Male
  Weight: 82 kg

DRUGS (3)
  1. PEGINTRON (PEGINTERFON ALFA-2B) (PEGINTERFERON ALFA-2B) [Suspect]
     Indication: HEPATITIS C
     Dosage: 120 MG; QW; SC
     Route: 058
     Dates: start: 20060301, end: 20070101
  2. RIBAVIRIN [Suspect]
     Indication: HEPATITIS C
     Dosage: 500 MG; QD; PO
     Route: 048
     Dates: start: 20060301, end: 20070101
  3. SUBUTEX [Concomitant]

REACTIONS (1)
  - SCHIZOAFFECTIVE DISORDER [None]
